FAERS Safety Report 21977295 (Version 2)
Quarter: 2023Q2

REPORT INFORMATION
  Report Type: Spontaneous
  Country: OM (occurrence: OM)
  Receive Date: 20230210
  Receipt Date: 20230413
  Transmission Date: 20230721
  Serious: Yes (Other)
  Sender: FDA-Public Use
  Company Number: OM-SAMSUNG BIOEPIS-SB-2023-03673

PATIENT
  Sex: Female

DRUGS (3)
  1. HADLIMA [Suspect]
     Active Substance: ADALIMUMAB-BWWD
     Indication: Behcet^s syndrome
     Route: 058
  2. COLCHICINE [Concomitant]
     Active Substance: COLCHICINE
     Indication: Product used for unknown indication
     Dosage: UNKNOWN
     Route: 065
  3. AZATHIOPRINE [Concomitant]
     Active Substance: AZATHIOPRINE
     Indication: Product used for unknown indication
     Dosage: UNKNOWN
     Route: 065

REACTIONS (3)
  - Behcet^s syndrome [Recovering/Resolving]
  - Product substitution issue [Unknown]
  - Product use in unapproved indication [Unknown]
